FAERS Safety Report 5637054-0 (Version None)
Quarter: 2008Q1

REPORT INFORMATION
  Report Type: 
  Country: None (occurrence: None)
  Receive Date: 20080225
  Receipt Date: 20070725
  Transmission Date: 20080703
  Serious: No
  Sender: FDA-Public Use
  Company Number: US-BRISTOL-MYERS SQUIBB COMPANY-13857552

PATIENT
  Age: 61 Year
  Sex: Female

DRUGS (8)
  1. METFORMIN HCL [Suspect]
     Indication: DIABETES MELLITUS
     Route: 048
  2. KLOR-CON [Suspect]
     Indication: BLOOD POTASSIUM DECREASED
     Dosage: KLOR-CON POWDER 20MEQ,BID,PO JUN/07-ONGOING.
     Route: 048
     Dates: start: 20050101, end: 20050101
  3. KLOR-CON M [Suspect]
     Indication: BLOOD POTASSIUM DECREASED
     Route: 048
     Dates: start: 20051221
  4. TENORETIC 100 [Concomitant]
  5. AMARYL [Concomitant]
  6. LIPITOR [Concomitant]
     Dosage: DURATION IS GIVEN AS 2-3 YEARS.
  7. NEXIUM [Concomitant]
  8. ASPIRIN [Concomitant]

REACTIONS (3)
  - ABDOMINAL DISCOMFORT [None]
  - ABDOMINAL DISTENSION [None]
  - FLATULENCE [None]
